FAERS Safety Report 14239407 (Version 2)
Quarter: 2017Q4

REPORT INFORMATION
  Report Type: Spontaneous
  Country: NL (occurrence: NL)
  Receive Date: 20171130
  Receipt Date: 20171201
  Transmission Date: 20180321
  Serious: Yes (Other)
  Sender: FDA-Public Use
  Company Number: NL-HORIZON-PRE-0367-2017

PATIENT
  Sex: Male

DRUGS (4)
  1. PREDNISONE. [Suspect]
     Active Substance: PREDNISONE
     Indication: PRODUCT USED FOR UNKNOWN INDICATION
     Route: 065
  2. IMURAN [Interacting]
     Active Substance: AZATHIOPRINE
     Route: 048
  3. PRALUENT [Interacting]
     Active Substance: ALIROCUMAB
     Route: 058
  4. ALIROCUMAB [Interacting]
     Active Substance: ALIROCUMAB

REACTIONS (3)
  - Cardiac failure [Unknown]
  - Condition aggravated [Unknown]
  - Drug interaction [Unknown]

NARRATIVE: CASE EVENT DATE: 2017
